FAERS Safety Report 6234978-0 (Version None)
Quarter: 2009Q2

REPORT INFORMATION
  Report Type: 
  Country: None (occurrence: None)
  Receive Date: 20090618
  Receipt Date: 20090615
  Transmission Date: 20091009
  Serious: Yes (Other)
  Sender: FDA-Public Use
  Company Number: US-GENENTECH-283915

PATIENT
  Sex: Female

DRUGS (3)
  1. AVASTIN [Suspect]
     Indication: OVARIAN CANCER RECURRENT
     Dosage: UNK
  2. TAXOL [Concomitant]
     Indication: OVARIAN CANCER RECURRENT
     Dosage: UNK
  3. CARBOPLATIN [Concomitant]
     Indication: OVARIAN CANCER RECURRENT
     Dosage: UNK

REACTIONS (2)
  - METASTASES TO BONE [None]
  - OVARIAN CANCER METASTATIC [None]
